FAERS Safety Report 4427917-6 (Version None)
Quarter: 2004Q3

REPORT INFORMATION
  Report Type: 
  Country: None (occurrence: None)
  Receive Date: 20040726
  Receipt Date: 20040312
  Transmission Date: 20050211
  Serious: No
  Sender: FDA-Public Use
  Company Number: USA040362509

PATIENT
  Age: 80 Year
  Sex: Female

DRUGS (11)
  1. FORTEO [Suspect]
     Indication: OSTEOPOROSIS
     Dosage: 20 UG/1 DAY
     Dates: start: 20030709, end: 20031112
  2. PRILOSEC [Concomitant]
  3. LASIX [Concomitant]
  4. SINGULAIR [Concomitant]
  5. DOXYCYCLINE [Concomitant]
  6. CALCIUM [Concomitant]
  7. VITAMIN D [Concomitant]
  8. MVI (MVI) [Concomitant]
  9. DOLOBID [Concomitant]
  10. MEDROL [Concomitant]
  11. MODURETIC 5-50 [Concomitant]

REACTIONS (1)
  - HYPERCALCAEMIA [None]
